FAERS Safety Report 6916900-4 (Version None)
Quarter: 2010Q3

REPORT INFORMATION
  Report Type: 
  Country: None (occurrence: None)
  Receive Date: 20100810
  Receipt Date: 20100802
  Transmission Date: 20110219
  Serious: Yes (Other)
  Sender: FDA-Public Use
  Company Number: A0874494A

PATIENT
  Sex: Male
  Weight: 106 kg

DRUGS (2)
  1. NIQUITIN 21MG [Suspect]
     Indication: SMOKING CESSATION THERAPY
     Route: 062
     Dates: start: 20100714
  2. NONE [Concomitant]

REACTIONS (3)
  - DYSGEUSIA [None]
  - EPISTAXIS [None]
  - MELAENA [None]
